FAERS Safety Report 18946598 (Version 1)
Quarter: 2021Q1

REPORT INFORMATION
  Report Type: Spontaneous
  Country: FR (occurrence: FR)
  Receive Date: 20210226
  Receipt Date: 20210226
  Transmission Date: 20210420
  Serious: Yes (Other)
  Sender: FDA-Public Use
  Company Number: FR-PFIZER INC-2021168909

PATIENT
  Age: 35 Year
  Sex: Male

DRUGS (3)
  1. METHOTREXATE SODIUM. [Suspect]
     Active Substance: METHOTREXATE SODIUM
     Indication: ROSAI-DORFMAN SYNDROME
     Dosage: 25 MG, WEEKLY
  2. CLADRIBINE. [Suspect]
     Active Substance: CLADRIBINE
     Indication: ROSAI-DORFMAN SYNDROME
     Dosage: 3 MONTHLY CYCLES OF 5 TREATMENT DAYS EACH
     Route: 058
     Dates: start: 2012
  3. INFLIXIMAB HOSPIRA [Suspect]
     Active Substance: INFLIXIMAB
     Indication: ROSAI-DORFMAN SYNDROME
     Dosage: 5 MG/KG, MONTHLY

REACTIONS (4)
  - Off label use [Unknown]
  - Myelodysplastic syndrome [Recovered/Resolved]
  - Drug ineffective for unapproved indication [Unknown]
  - Anaemia [Recovered/Resolved]

NARRATIVE: CASE EVENT DATE: 2012
